FAERS Safety Report 9445777 (Version 2)
Quarter: 2013Q3

REPORT INFORMATION
  Report Type: Spontaneous
  Country: US (occurrence: US)
  Receive Date: 20130807
  Receipt Date: 20130925
  Transmission Date: 20140515
  Serious: Yes (Other)
  Sender: FDA-Public Use
  Company Number: US-FRI-1000047513

PATIENT
  Age: 32 Year
  Sex: Female

DRUGS (10)
  1. VIIBRYD [Suspect]
     Indication: DEPRESSION
     Dosage: 10 MG
     Route: 048
     Dates: start: 20130621, end: 20130627
  2. VIIBRYD [Suspect]
     Indication: ANXIETY
     Dosage: 20 MG
     Route: 048
     Dates: start: 20130628, end: 20130705
  3. VIIBRYD [Suspect]
     Indication: DEPRESSION
     Dosage: 40 MG
     Route: 048
     Dates: start: 20130706, end: 20130724
  4. VIIBRYD [Suspect]
     Indication: ANXIETY
  5. VYVANSE [Concomitant]
     Dosage: 70 MG
  6. XANAX [Concomitant]
     Indication: ANXIETY
     Dosage: 0.5 MG AS NEEDED
  7. SYNTHROID [Concomitant]
     Dosage: 25 MCG
  8. TRIAMTERENE-HYDROCHLOROTHIAZIDE [Concomitant]
  9. VITAMIN D [Concomitant]
     Dosage: 2000 IU
  10. VITAMIN B 12 [Concomitant]
     Dosage: 1000 MG IM MONTHLY
     Route: 030

REACTIONS (1)
  - Pancreatitis acute [Recovered/Resolved]
